FAERS Safety Report 9394144 (Version 2)
Quarter: 2013Q3

REPORT INFORMATION
  Report Type: Spontaneous
  Country: US (occurrence: US)
  Receive Date: 20130710
  Receipt Date: 20130806
  Transmission Date: 20140515
  Serious: Yes (Hospitalization, Other)
  Sender: FDA-Public Use
  Company Number: US-GILEAD-2013-0073802

PATIENT
  Sex: Female

DRUGS (3)
  1. LETAIRIS [Suspect]
     Indication: PULMONARY ARTERIAL HYPERTENSION
     Dosage: 5 MG, QD
     Dates: start: 20110903
  2. LETAIRIS [Suspect]
     Dosage: 5 MG, QD
     Dates: start: 20110902
  3. LASIX                              /00032601/ [Concomitant]

REACTIONS (4)
  - Pericardial effusion [Unknown]
  - Oedema [Recovered/Resolved]
  - Haemoglobin decreased [Unknown]
  - Fatigue [Unknown]
